FAERS Safety Report 10164008 (Version 2)
Quarter: 2014Q2

REPORT INFORMATION
  Report Type: Spontaneous
  Country: US (occurrence: US)
  Receive Date: 20140510
  Receipt Date: 20140510
  Transmission Date: 20141212
  Serious: No
  Sender: FDA-Public Use
  Company Number: US-BRISTOL-MYERS SQUIBB COMPANY-19801729

PATIENT
  Age: 57 Year
  Sex: Female
  Weight: 113.38 kg

DRUGS (3)
  1. BYDUREON [Suspect]
     Indication: TYPE 2 DIABETES MELLITUS
     Dosage: NO OF DOSES:2
     Route: 058
     Dates: start: 20130701, end: 20130808
  2. BYETTA [Suspect]
     Indication: TYPE 2 DIABETES MELLITUS
     Dates: start: 201308
  3. METFORMIN HCL TABS 500MG [Suspect]
     Route: 048

REACTIONS (4)
  - Injection site swelling [Recovered/Resolved]
  - Injection site pruritus [Recovered/Resolved]
  - Blood glucose fluctuation [Unknown]
  - Decreased appetite [Unknown]
